FAERS Safety Report 20057845 (Version 1)
Quarter: 2021Q4

REPORT INFORMATION
  Report Type: Spontaneous
  Country: FR (occurrence: FR)
  Receive Date: 20211111
  Receipt Date: 20211111
  Transmission Date: 20220303
  Serious: Yes (Hospitalization, Other)
  Sender: FDA-Public Use
  Company Number: None

PATIENT
  Age: 31 Year
  Sex: Male

DRUGS (3)
  1. QUETIAPINE [Suspect]
     Active Substance: QUETIAPINE
     Indication: Product used for unknown indication
     Dosage: UNK NP
     Route: 048
     Dates: start: 20210713, end: 20210713
  2. METHADONE HYDROCHLORIDE [Suspect]
     Active Substance: METHADONE HYDROCHLORIDE
     Indication: Product used for unknown indication
     Dosage: UNK NP
     Route: 048
     Dates: start: 20210713, end: 20210713
  3. AMITRIPTYLINE HYDROCHLORIDE [Suspect]
     Active Substance: AMITRIPTYLINE HYDROCHLORIDE
     Indication: Product used for unknown indication
     Dosage: UNK NP
     Route: 048
     Dates: start: 20210713, end: 20210713

REACTIONS (6)
  - Coma [Recovered/Resolved]
  - Mydriasis [Recovered/Resolved]
  - Poisoning deliberate [Recovered/Resolved]
  - Agitation [Recovered/Resolved]
  - Drug abuse [Not Recovered/Not Resolved]
  - Intentional overdose [Unknown]

NARRATIVE: CASE EVENT DATE: 20210713
